FAERS Safety Report 6073667-2 (Version None)
Quarter: 2009Q1

REPORT INFORMATION
  Report Type: 
  Country: None (occurrence: None)
  Receive Date: 20090211
  Receipt Date: 20080626
  Transmission Date: 20090719
  Serious: Yes (Other)
  Sender: FDA-Public Use
  Company Number: US-ROCHE-517150

PATIENT
  Sex: Male
  Weight: 96 kg

DRUGS (12)
  1. MYCOPHENOLATE MOFETIL [Suspect]
     Route: 048
     Dates: start: 20061024
  2. TACROLIMUS [Suspect]
     Route: 048
  3. PREDNISONE [Suspect]
     Route: 048
     Dates: start: 20070515
  4. TOPROL-XL [Concomitant]
     Dates: start: 20060628
  5. GEMFIBROZIL [Concomitant]
     Dates: start: 20060206
  6. LIPITOR [Concomitant]
     Dates: start: 20060628
  7. NEXIUM [Concomitant]
     Dates: start: 20030718
  8. BACTRIM [Concomitant]
     Dosage: TDD: 400/80.
     Dates: start: 20060628
  9. 1 CONCOMITANT DRUG [Concomitant]
     Dosage: DRUG NAME: CALCITD.
     Dates: start: 20070514
  10. MAGNESIUM OXIDE [Concomitant]
     Dates: start: 20070812
  11. HUMALOG [Concomitant]
     Dosage: TAKEN AS NEEDED.
     Dates: start: 20060829
  12. LANTUS [Concomitant]
     Dosage: TDD: 65 U.
     Dates: start: 20060829

REACTIONS (1)
  - OSTEONECROSIS [None]
